FAERS Safety Report 4652088-0 (Version None)
Quarter: 2005Q2

REPORT INFORMATION
  Report Type: 
  Country: None (occurrence: None)
  Receive Date: 20050504
  Receipt Date: 20050429
  Transmission Date: 20051028
  Serious: Yes (Hospitalization)
  Sender: FDA-Public Use
  Company Number: 200513670US

PATIENT
  Sex: Male

DRUGS (3)
  1. LOVENOX [Suspect]
     Indication: PROPHYLAXIS
     Dates: start: 20050128, end: 20050204
  2. CARDIOVASCULAR SYSTEM DRUGS [Concomitant]
     Dosage: DOSE: NOT PROVIDED
  3. ZOCOR [Concomitant]
     Dosage: DOSE: NOT PROVIDED

REACTIONS (6)
  - DIPLEGIA [None]
  - FAECAL INCONTINENCE [None]
  - PNEUMONIA [None]
  - SPINAL CORD HAEMORRHAGE [None]
  - URINARY INCONTINENCE [None]
  - WHEELCHAIR USER [None]
